FAERS Safety Report 18482771 (Version 7)
Quarter: 2021Q1

REPORT INFORMATION
  Report Type: Spontaneous
  Country: CA (occurrence: CA)
  Receive Date: 20201110
  Receipt Date: 20210216
  Transmission Date: 20210419
  Serious: Yes (Other)
  Sender: FDA-Public Use
  Company Number: CA-CELLTRION INC.-2019CA021714

PATIENT

DRUGS (16)
  1. INFLECTRA [Suspect]
     Active Substance: INFLIXIMAB-DYYB
     Dosage: 500 MG, EVERY 6 WEEKS, THEN EVERY 8 WEEKS
     Route: 042
     Dates: start: 20190612, end: 20190612
  2. INFLECTRA [Suspect]
     Active Substance: INFLIXIMAB-DYYB
     Indication: CROHN^S DISEASE
     Dosage: 1000 MG, UNK
     Route: 042
     Dates: start: 20190515, end: 20190515
  3. INFLECTRA [Suspect]
     Active Substance: INFLIXIMAB-DYYB
     Dosage: 700 MG, UNK
     Route: 042
     Dates: start: 20190518, end: 20190518
  4. INFLECTRA [Suspect]
     Active Substance: INFLIXIMAB-DYYB
     Dosage: 1000 MG, EVERY 4 WEEKS
     Route: 042
     Dates: start: 20201201, end: 20201201
  5. LEVOTHYROXINE. [Concomitant]
     Active Substance: LEVOTHYROXINE
     Indication: HYPOTHYROIDISM
     Dosage: 137 UG, 1X/DAY
     Route: 048
  6. SEROQUEL [Concomitant]
     Active Substance: QUETIAPINE FUMARATE
     Indication: DEPRESSION
  7. ZOLOFT [Concomitant]
     Active Substance: SERTRALINE HYDROCHLORIDE
     Indication: DEPRESSION
     Dosage: 100 MG, 1X/DAY
     Route: 048
  8. INFLECTRA [Suspect]
     Active Substance: INFLIXIMAB-DYYB
     Dosage: 1000 MG, EVERY 4 WEEKS
     Route: 042
     Dates: start: 20200910
  9. INFLECTRA [Suspect]
     Active Substance: INFLIXIMAB-DYYB
     Dosage: 1000 MG, EVERY 4 WEEKS
     Route: 042
     Dates: start: 20200813
  10. PANTOLOC [PANTOPRAZOLE] [Concomitant]
     Active Substance: PANTOPRAZOLE SODIUM
     Dosage: 20MG?40MG, 1X/DAY
     Route: 048
  11. PREDNISONE. [Concomitant]
     Active Substance: PREDNISONE
     Dosage: TAPERING DOSE
     Route: 048
  12. INFLECTRA [Suspect]
     Active Substance: INFLIXIMAB-DYYB
     Dosage: 1000 MG, EVERY 4 WEEKS
     Route: 042
     Dates: start: 20190704
  13. INFLECTRA [Suspect]
     Active Substance: INFLIXIMAB-DYYB
     Dosage: 1000 MG, EVERY 4 WEEKS
     Route: 042
     Dates: start: 20201008
  14. INFLECTRA [Suspect]
     Active Substance: INFLIXIMAB-DYYB
     Dosage: 1000 MG, EVERY 4 WEEKS
     Route: 042
     Dates: start: 20201103
  15. INFLECTRA [Suspect]
     Active Substance: INFLIXIMAB-DYYB
     Dosage: 1000 MG, EVERY 4 WEEKS
     Route: 042
     Dates: start: 20210114
  16. SEROQUEL [Concomitant]
     Active Substance: QUETIAPINE FUMARATE
     Indication: ANXIETY
     Dosage: 25 MG, QHS (AT BEDTIME)
     Route: 048

REACTIONS (12)
  - Fatigue [Unknown]
  - Pyrexia [Unknown]
  - Body temperature increased [Unknown]
  - Product use issue [Unknown]
  - Hepatitis [Unknown]
  - Off label use [Unknown]
  - Intentional product use issue [Unknown]
  - Pain [Recovering/Resolving]
  - Autoimmune hepatitis [Unknown]
  - Therapeutic product effect incomplete [Unknown]
  - Suspected COVID-19 [Unknown]
  - Herpes zoster [Recovering/Resolving]

NARRATIVE: CASE EVENT DATE: 2019
